FAERS Safety Report 5071454-5 (Version None)
Quarter: 2006Q3

REPORT INFORMATION
  Report Type: 
  Country: None (occurrence: None)
  Receive Date: 20060804
  Receipt Date: 20060802
  Transmission Date: 20061208
  Serious: Yes (Hospitalization)
  Sender: FDA-Public Use
  Company Number: US-GLAXOSMITHKLINE-A0614686A

PATIENT
  Age: 62 Year
  Sex: Female

DRUGS (4)
  1. LAMICTAL [Suspect]
     Dosage: 200MG PER DAY
     Route: 048
     Dates: start: 20010101
  2. TRILEPTAL [Concomitant]
  3. KEPPRA [Concomitant]
  4. FOSAMAX [Concomitant]

REACTIONS (7)
  - ALOPECIA [None]
  - DYSPNOEA [None]
  - EYE PAIN [None]
  - MUSCULOSKELETAL PAIN [None]
  - NECK PAIN [None]
  - SKIN DISCOLOURATION [None]
  - VISION BLURRED [None]
